FAERS Safety Report 6786952-3 (Version None)
Quarter: 2010Q2

REPORT INFORMATION
  Report Type: 
  Country: None (occurrence: None)
  Receive Date: 20100623
  Receipt Date: 20100617
  Transmission Date: 20101027
  Serious: Yes (Congenital Anomaly)
  Sender: FDA-Public Use
  Company Number: CHPA2010JP08478

PATIENT
  Sex: Female
  Weight: 3 kg

DRUGS (4)
  1. TAVEGYL (NCH) [Suspect]
     Dosage: UNK, UNK
     Route: 064
  2. LORAZEPAM [Suspect]
     Dosage: UNK, UNK
     Route: 064
  3. PAXIL [Suspect]
     Dosage: UNK, UNK
     Route: 064
  4. TALION [Suspect]
     Dosage: UNK, UNK
     Route: 064

REACTIONS (3)
  - CONGENITAL EYE DISORDER [None]
  - CRYPTOPHTHALMOS [None]
  - DRUG EXPOSURE DURING PREGNANCY [None]
